FAERS Safety Report 24182674 (Version 2)
Quarter: 2024Q3

REPORT INFORMATION
  Report Type: Spontaneous
  Country: JP (occurrence: JP)
  Receive Date: 20240807
  Receipt Date: 20240813
  Transmission Date: 20241017
  Serious: Yes (Hospitalization, Other)
  Sender: ASTELLAS
  Company Number: JP-ASTELLAS-2024JP005644

PATIENT
  Age: 82 Year
  Sex: Male

DRUGS (2)
  1. XTANDI [Suspect]
     Active Substance: ENZALUTAMIDE
     Indication: Prostate cancer metastatic
     Dosage: UNK UNK, UNKNOWN FREQ.
     Route: 065
     Dates: start: 20240710, end: 20240731
  2. DEGARELIX [Concomitant]
     Active Substance: DEGARELIX
     Indication: Product used for unknown indication
     Dosage: UNK UNK, UNKNOWN FREQ.
     Route: 065
     Dates: start: 20240710, end: 20240731

REACTIONS (5)
  - Pancytopenia [Not Recovered/Not Resolved]
  - Malaise [Unknown]
  - Dehydration [Recovered/Resolved]
  - Lung neoplasm malignant [Unknown]
  - Aortic aneurysm [Unknown]

NARRATIVE: CASE EVENT DATE: 20240731
